FAERS Safety Report 10960705 (Version 1)
Quarter: 2015Q1

REPORT INFORMATION
  Report Type: Spontaneous
  Country: US (occurrence: US)
  Receive Date: 20150327
  Receipt Date: 20150327
  Transmission Date: 20150721
  Serious: Yes (Other)
  Sender: FDA-Public Use
  Company Number: US-PFIZER INC-2015102976

PATIENT
  Age: 55 Year
  Sex: Female

DRUGS (1)
  1. LYRICA [Suspect]
     Active Substance: PREGABALIN
     Dosage: ONE IN MORNING ONE IN NIGHT, 2X/DAY

REACTIONS (10)
  - Peripheral swelling [Unknown]
  - Weight increased [Unknown]
  - Tooth disorder [Unknown]
  - Eye swelling [Unknown]
  - Local swelling [Unknown]
  - Uterine disorder [Unknown]
  - Skin induration [Unknown]
  - Hypersensitivity [Unknown]
  - Skin discolouration [Unknown]
  - Swelling face [Unknown]
